FAERS Safety Report 7772277-6 (Version None)
Quarter: 2011Q3

REPORT INFORMATION
  Report Type: 
  Country: None (occurrence: None)
  Receive Date: 20110922
  Receipt Date: 20110110
  Transmission Date: 20111222
  Serious: No
  Sender: FDA-Public Use
  Company Number: US-ASTRAZENECA-2011SE01633

PATIENT
  Age: 18 Year
  Sex: Female

DRUGS (4)
  1. FLAXSEED [Concomitant]
  2. SEROQUEL [Suspect]
     Indication: BIPOLAR DISORDER
     Route: 048
  3. FISH OIL [Concomitant]
  4. HERBAL TEAS [Concomitant]

REACTIONS (3)
  - DRUG DOSE OMISSION [None]
  - SYNCOPE [None]
  - PETIT MAL EPILEPSY [None]
